FAERS Safety Report 8083742-9 (Version None)
Quarter: 2012Q1

REPORT INFORMATION
  Report Type: 
  Country: None (occurrence: None)
  Receive Date: 20120127
  Receipt Date: 20110122
  Transmission Date: 20120608
  Serious: No
  Sender: FDA-Public Use
  Company Number: US-ABBOTT-11P-163-0700108-00

PATIENT
  Age: 50 Year
  Sex: Female

DRUGS (14)
  1. HUMIRA [Suspect]
     Indication: CROHN'S DISEASE
     Dates: start: 20080201
  2. AZATHIOPRINE [Concomitant]
     Indication: CROHN'S DISEASE
  3. MOBIC [Concomitant]
     Indication: ARTHRALGIA
  4. CELEXA [Concomitant]
     Indication: DEPRESSION
     Dosage: 60 DAILY IN AM
  5. VITAMIN D [Concomitant]
     Indication: VITAMIN SUPPLEMENTATION
     Dosage: ONE EVERY FRIDAY
  6. FERGON [Concomitant]
     Indication: BLOOD IRON DECREASED
  7. LORTAB [Concomitant]
     Indication: PAIN
     Dosage: 5/500 MG
  8. BENTYL [Concomitant]
     Indication: MUSCLE SPASMS
     Dosage: 1 EVERY 4-6 HRS
  9. BENTYL [Concomitant]
     Indication: CROHN'S DISEASE
  10. ESTRADIOL [Concomitant]
     Indication: OESTROGEN REPLACEMENT THERAPY
     Dosage: 1 ONE AM .05 MG
  11. CLONAZEPAM [Concomitant]
     Indication: PRODUCT USED FOR UNKNOWN INDICATION
     Dosage: ONE AT BEDTIME
  12. FISH OIL [Concomitant]
     Indication: VITAMIN SUPPLEMENTATION
  13. HYDROCHLOROTHIAZIDE [Concomitant]
     Indication: DIURETIC THERAPY
  14. OMEPRAZOLE [Concomitant]
     Indication: CROHN'S DISEASE

REACTIONS (2)
  - PRURITUS [None]
  - SKIN DISCOLOURATION [None]
